FAERS Safety Report 8459865 (Version 2)
Quarter: 2012Q4

REPORT INFORMATION
  Report Type: 
  Country: US (occurrence: US)
  Receive Date: 20120314
  Receipt Date: 20121017
  Transmission Date: 20130627
  Serious: No
  Sender: FDA-Public Use
  Company Number: US-ASTRAZENECA-2012SE08884

PATIENT
  Age: 51 Year
  Sex: Female
  Weight: 88.5 kg

DRUGS (7)
  1. TOPROL XL [Suspect]
     Indication: HYPERTENSION
     Route: 048
  2. SEROQUEL [Suspect]
     Indication: MAJOR DEPRESSION
     Route: 048
  3. SEROQUEL [Suspect]
     Indication: SLEEP DISORDER
     Route: 048
  4. SEROQUEL [Suspect]
     Indication: BIPOLAR DISORDER
     Route: 048
  5. SEROQUEL [Suspect]
     Indication: MAJOR DEPRESSION
     Route: 048
  6. SEROQUEL [Suspect]
     Indication: SLEEP DISORDER
     Route: 048
  7. SEROQUEL [Suspect]
     Indication: BIPOLAR DISORDER
     Route: 048

REACTIONS (7)
  - Malaise [Unknown]
  - Drug dependence [Unknown]
  - Hangover [Unknown]
  - Palpitations [Unknown]
  - Somnolence [Unknown]
  - Somnolence [Unknown]
  - Drug dispensing error [Unknown]
